FAERS Safety Report 4446344-9 (Version None)
Quarter: 2004Q3

REPORT INFORMATION
  Report Type: 
  Country: None (occurrence: None)
  Receive Date: 20040910
  Receipt Date: 20040902
  Transmission Date: 20050211
  Serious: Yes (Other)
  Sender: FDA-Public Use
  Company Number: US-BRISTOL-MYERS SQUIBB COMPANY-12691374

PATIENT
  Sex: Female

DRUGS (1)
  1. PROLIXIN [Suspect]
     Dosage: TAKEN ^SEVERAL YEARS AGO^

REACTIONS (1)
  - BREAST CANCER [None]
